FAERS Safety Report 24878277 (Version 1)
Quarter: 2025Q1

REPORT INFORMATION
  Report Type: Spontaneous
  Country: US (occurrence: US)
  Receive Date: 20250123
  Receipt Date: 20250123
  Transmission Date: 20250409
  Serious: Yes (Hospitalization, Other)
  Sender: AMGEN
  Company Number: US-AMGEN-USASP2025009071

PATIENT
  Age: 64 Year
  Sex: Female

DRUGS (8)
  1. PREDNISONE [Suspect]
     Active Substance: PREDNISONE
     Indication: Lymphoproliferative disorder
     Route: 065
  2. PREDNISONE [Suspect]
     Active Substance: PREDNISONE
     Indication: Sarcoidosis
     Route: 065
  3. METHOTREXATE [Concomitant]
     Active Substance: METHOTREXATE
     Indication: Lymphoproliferative disorder
  4. METHOTREXATE [Concomitant]
     Active Substance: METHOTREXATE
     Indication: Sarcoidosis
  5. RITUXIMAB [Concomitant]
     Active Substance: RITUXIMAB
     Indication: Lymphoproliferative disorder
     Route: 065
  6. CYCLOPHOSPHAMIDE [Concomitant]
     Active Substance: CYCLOPHOSPHAMIDE
     Indication: Lymphoproliferative disorder
  7. DOXORUBICIN HYDROCHLORIDE [Concomitant]
     Active Substance: DOXORUBICIN HYDROCHLORIDE
     Indication: Lymphoproliferative disorder
  8. VINCRISTINE [Concomitant]
     Active Substance: VINCRISTINE
     Indication: Lymphoproliferative disorder

REACTIONS (4)
  - Disseminated varicella [Unknown]
  - Lymphoproliferative disorder [Recovering/Resolving]
  - Hypogammaglobulinaemia [Unknown]
  - Lymphopenia [Unknown]
